FAERS Safety Report 25549283 (Version 1)
Quarter: 2025Q3

REPORT INFORMATION
  Report Type: Spontaneous
  Country: EU (occurrence: EU)
  Receive Date: 20250714
  Receipt Date: 20250714
  Transmission Date: 20251021
  Serious: Yes (Life-Threatening)
  Sender: MYLAN
  Company Number: None

PATIENT
  Age: 67 Year
  Sex: Female
  Weight: 50 kg

DRUGS (10)
  1. DEXAMETHASONE [Suspect]
     Active Substance: DEXAMETHASONE
     Indication: Anaesthesia
     Dates: start: 20250409, end: 20250409
  2. CEFAZOLIN SODIUM [Suspect]
     Active Substance: CEFAZOLIN SODIUM
     Indication: Antibiotic therapy
     Dosage: 2 GRAM, QD (PER DAY)
     Dates: start: 20250409, end: 20250409
  3. ROPIVACAINE [Suspect]
     Active Substance: ROPIVACAINE
     Indication: Anaesthesia
     Dates: start: 20250409, end: 20250409
  4. DROPERIDOL [Suspect]
     Active Substance: DROPERIDOL
     Indication: Prophylaxis of nausea and vomiting
     Dates: start: 20250409, end: 20250409
  5. LIDOCAINE [Concomitant]
     Active Substance: LIDOCAINE
     Indication: Anaesthesia
     Dates: start: 20250409, end: 20250409
  6. CISATRACURIUM BESYLATE [Concomitant]
     Active Substance: CISATRACURIUM BESYLATE
     Indication: Anaesthesia
     Dates: start: 20250409, end: 20250409
  7. SUFENTANIL [Concomitant]
     Active Substance: SUFENTANIL
     Indication: Anaesthesia
     Dates: start: 20250409, end: 20250409
  8. SEVOFLURANE [Concomitant]
     Active Substance: SEVOFLURANE
     Indication: Anaesthesia
     Dates: start: 20250409, end: 20250409
  9. ESKETAMINE [Concomitant]
     Active Substance: ESKETAMINE
     Indication: Anaesthesia
     Dates: start: 20250409, end: 20250409
  10. PROPOFOL [Concomitant]
     Active Substance: PROPOFOL
     Indication: Anaesthesia
     Dates: start: 20250409, end: 20250409

REACTIONS (1)
  - Immediate post-injection reaction [Recovering/Resolving]

NARRATIVE: CASE EVENT DATE: 20250409
